FAERS Safety Report 5531687-8 (Version None)
Quarter: 2007Q4

REPORT INFORMATION
  Report Type: 
  Country: None (occurrence: None)
  Receive Date: 20071128
  Receipt Date: 20071112
  Transmission Date: 20080405
  Serious: Yes (Hospitalization)
  Sender: FDA-Public Use
  Company Number: S07-GER-06089-01

PATIENT
  Age: 63 Year
  Sex: Female

DRUGS (10)
  1. ESCITALOPRAM OXALATE [Suspect]
     Indication: DEPRESSION
     Dosage: 15 MG QD PO
     Route: 048
     Dates: start: 20070825, end: 20070830
  2. ESCITALOPRAM [Suspect]
     Indication: DEPRESSION
     Dosage: 10 MG QD PO
     Route: 048
     Dates: start: 20070822, end: 20070824
  3. MIRTAZAPINE [Concomitant]
  4. APPROVEL (IRBESARTAN) [Concomitant]
  5. DIGOXIN [Concomitant]
  6. METOPROLOL SUCCINATE [Concomitant]
  7. SIMVASTATIN [Concomitant]
  8. MARCUMAR [Concomitant]
  9. HCT HEXAL (HYDROCHLOROTHIAZIDE) [Concomitant]
  10. MELPERON (MELPERONE) [Concomitant]

REACTIONS (3)
  - DRUG INEFFECTIVE [None]
  - RIGHT VENTRICULAR FAILURE [None]
  - SYSTEMIC LUPUS ERYTHEMATOSUS RASH [None]
